FAERS Safety Report 8922036 (Version 2)
Quarter: 2012Q4

REPORT INFORMATION
  Report Type: 
  Country: BR (occurrence: BR)
  Receive Date: 20121123
  Receipt Date: 20121205
  Transmission Date: 20130627
  Serious: Yes (Other)
  Sender: FDA-Public Use
  Company Number: PHHY2012BR106640

PATIENT
  Sex: Female
  Weight: 96 kg

DRUGS (3)
  1. DIOVAN HCT [Suspect]
     Indication: HYPERTENSION
     Dosage: 1 DF, (320/12.5mg) daily
     Route: 048
  2. DIOVAN [Suspect]
     Indication: HYPERTENSION
     Dosage: 125 mg, daily
     Route: 048
  3. SOMALGIN [Suspect]
     Indication: HYPERTENSION
     Dosage: 100 mg, daily
     Route: 048

REACTIONS (4)
  - Meniscus injury [Recovered/Resolved]
  - Weight increased [Recovering/Resolving]
  - Hypertension [Recovered/Resolved]
  - Headache [Recovered/Resolved]
